FAERS Safety Report 4360349-8 (Version None)
Quarter: 2004Q2

REPORT INFORMATION
  Report Type: 
  Country: None (occurrence: None)
  Receive Date: 20040514
  Receipt Date: 20040504
  Transmission Date: 20050107
  Serious: Yes (Other)
  Sender: FDA-Public Use
  Company Number: US-JNJFOC-20040501302

PATIENT
  Age: 51 Year
  Sex: Female

DRUGS (1)
  1. LEVOFLOXACIN [Suspect]
     Indication: PELVIC INFECTION

REACTIONS (9)
  - ALLODYNIA [None]
  - CONFUSIONAL STATE [None]
  - DISTURBANCE IN ATTENTION [None]
  - DRUG INEFFECTIVE [None]
  - HYPOAESTHESIA [None]
  - MEMORY IMPAIRMENT [None]
  - PARAESTHESIA [None]
  - TENDON INJURY [None]
  - TENDONITIS [None]
